FAERS Safety Report 7602504-7 (Version None)
Quarter: 2011Q3

REPORT INFORMATION
  Report Type: 
  Country: None (occurrence: None)
  Receive Date: 20110701
  Receipt Date: 20110628
  Transmission Date: 20111222
  Serious: Yes (Hospitalization, Other)
  Sender: FDA-Public Use
  Company Number: VAL_00578_2011

PATIENT
  Sex: Male

DRUGS (11)
  1. ANTIHISTAMINES [Concomitant]
  2. BUMEX [Suspect]
     Indication: BLOOD PRESSURE
     Dosage: (1.5 MG BID)
     Dates: start: 20090101, end: 20110418
  3. BUMEX [Suspect]
     Indication: RENAL FAILURE CHRONIC
     Dosage: (1.5 MG BID)
     Dates: start: 20090101, end: 20110418
  4. KRYSTEXXA [Suspect]
     Indication: GOUT
     Dosage: SEE IMAGE
     Route: 042
     Dates: start: 20110307, end: 20110307
  5. KRYSTEXXA [Suspect]
     Indication: GOUT
     Dosage: SEE IMAGE
     Route: 042
     Dates: start: 20110404, end: 20110404
  6. KRYSTEXXA [Suspect]
     Indication: GOUT
     Dosage: SEE IMAGE
     Route: 042
     Dates: start: 20110321, end: 20110321
  7. STEROID [Concomitant]
  8. PREDNISONE [Concomitant]
  9. ANAKINRA [Concomitant]
  10. COLCHICINE [Suspect]
     Indication: GOUT
     Dosage: (0.6 MG QOD)
     Dates: start: 20090101, end: 20110418
  11. LOSARTAN POTASSIUM [Suspect]
     Indication: BLOOD PRESSURE
     Dosage: (25 MG QD)
     Dates: start: 20090101, end: 20110418

REACTIONS (5)
  - BLOOD ALKALINE PHOSPHATASE INCREASED [None]
  - HEPATOTOXICITY [None]
  - HEPATOCELLULAR INJURY [None]
  - TRANSAMINASES INCREASED [None]
  - RENAL FAILURE ACUTE [None]
